FAERS Safety Report 20685293 (Version 2)
Quarter: 2022Q2

REPORT INFORMATION
  Report Type: Report from Study
  Country: US (occurrence: US)
  Receive Date: 20220407
  Receipt Date: 20220527
  Transmission Date: 20220721
  Serious: Yes (Hospitalization, Other)
  Sender: FDA-Public Use
  Company Number: US-TAKEDA-2022TUS021914

PATIENT
  Age: 40 Year
  Sex: Female

DRUGS (2)
  1. HUMAN IMMUNOGLOBULIN G [Suspect]
     Active Substance: HUMAN IMMUNOGLOBULIN G
     Indication: Primary immunodeficiency syndrome
     Dosage: 25 GRAM, MONTHLY
     Route: 042
  2. CUVITRU [Suspect]
     Active Substance: HUMAN IMMUNOGLOBULIN G
     Indication: Primary immunodeficiency syndrome
     Dosage: UNK
     Route: 065

REACTIONS (8)
  - Myocardial infarction [Unknown]
  - Post procedural infection [Unknown]
  - Stress cardiomyopathy [Unknown]
  - Near death experience [Unknown]
  - Exposure during pregnancy [Unknown]
  - Premature delivery [Unknown]
  - Wrong product administered [Recovered/Resolved]
  - Respiratory tract infection [Recovered/Resolved]

NARRATIVE: CASE EVENT DATE: 20210301
